FAERS Safety Report 13780005 (Version 2)
Quarter: 2017Q3

REPORT INFORMATION
  Report Type: Spontaneous
  Country: FR (occurrence: FR)
  Receive Date: 20170723
  Receipt Date: 20170925
  Transmission Date: 20171127
  Serious: Yes (Other)
  Sender: FDA-Public Use
  Company Number: FR-MYLANLABS-2017M1043004

PATIENT
  Age: 38 Year
  Sex: Male
  Weight: 77 kg

DRUGS (2)
  1. LEPONEX [Suspect]
     Active Substance: CLOZAPINE
     Indication: SCHIZOPHRENIA
     Dosage: 300 MG, QD
     Dates: start: 2005
  2. DAFALGAN [Concomitant]
     Active Substance: ACETAMINOPHEN
     Indication: PAIN
     Dosage: 1 G, PRN

REACTIONS (9)
  - Hyperleukocytosis [Recovered/Resolved]
  - Red blood cell count increased [Not Recovered/Not Resolved]
  - Mean cell haemoglobin decreased [Not Recovered/Not Resolved]
  - Mean cell haemoglobin increased [Unknown]
  - Basophil count increased [Unknown]
  - Haemoglobin increased [Unknown]
  - Haematocrit increased [Recovering/Resolving]
  - Eosinophil count increased [Unknown]
  - Neutrophil count increased [Recovering/Resolving]

NARRATIVE: CASE EVENT DATE: 20170607
